FAERS Safety Report 7435138-8 (Version None)
Quarter: 2011Q2

REPORT INFORMATION
  Report Type: 
  Country: None (occurrence: None)
  Receive Date: 20110425
  Receipt Date: 20110413
  Transmission Date: 20111010
  Serious: Yes (Other)
  Sender: FDA-Public Use
  Company Number: PHHY2011JP28210

PATIENT

DRUGS (2)
  1. TEGRETOL [Suspect]
     Dosage: UNK UKN, UNK
  2. EBASTINE [Concomitant]
     Dosage: UNK UKN, UNK

REACTIONS (1)
  - NO ADVERSE EVENT [None]
